FAERS Safety Report 5188169-5 (Version None)
Quarter: 2006Q4

REPORT INFORMATION
  Report Type: 
  Country: None (occurrence: None)
  Receive Date: 20061221
  Receipt Date: 20061205
  Transmission Date: 20070319
  Serious: Yes (Hospitalization)
  Sender: FDA-Public Use
  Company Number: 2006AP05835

PATIENT
  Age: 27728 Day
  Sex: Female
  Weight: 50.2 kg

DRUGS (7)
  1. IRESSA [Suspect]
     Indication: NON-SMALL CELL LUNG CANCER
     Route: 048
     Dates: start: 20061004, end: 20061207
  2. BLOPRESS [Concomitant]
     Indication: HYPERTENSION
     Route: 048
     Dates: start: 19900101
  3. RHYTHMY [Concomitant]
     Indication: INSOMNIA
     Route: 048
     Dates: start: 20060908, end: 20061007
  4. PURSENNID [Concomitant]
     Indication: CONSTIPATION
     Route: 048
     Dates: start: 20060910, end: 20061017
  5. PURSENNID [Concomitant]
     Route: 048
     Dates: start: 20061020
  6. LEVOFLOXACIN [Concomitant]
     Indication: PYREXIA
     Route: 048
     Dates: start: 20060929, end: 20060930
  7. CALONAL [Concomitant]
     Indication: PYREXIA
     Route: 048
     Dates: start: 20061002, end: 20061002

REACTIONS (8)
  - ANOREXIA [None]
  - DRY SKIN [None]
  - GASTRIC MUCOSAL HYPERTROPHY [None]
  - HYDRONEPHROSIS [None]
  - LIMB INJURY [None]
  - RENAL FAILURE ACUTE [None]
  - TONGUE DISORDER [None]
  - URINARY TRACT OBSTRUCTION [None]
